FAERS Safety Report 10195581 (Version 3)
Quarter: 2014Q3

REPORT INFORMATION
  Report Type: Report from Study
  Country: GB (occurrence: GB)
  Receive Date: 20140527
  Receipt Date: 20140714
  Transmission Date: 20150326
  Serious: Yes (Death, Other)
  Sender: FDA-Public Use
  Company Number: GB-ROCHE-1385826

PATIENT
  Age: 85 Year
  Sex: Male

DRUGS (1)
  1. RANIBIZUMAB [Suspect]
     Active Substance: RANIBIZUMAB
     Indication: AGE-RELATED MACULAR DEGENERATION
     Route: 050
     Dates: start: 20090518, end: 20120619

REACTIONS (3)
  - Squamous cell carcinoma of lung [Not Recovered/Not Resolved]
  - Disease progression [Fatal]
  - Metastases to liver [Fatal]

NARRATIVE: CASE EVENT DATE: 20111207
